FAERS Safety Report 7424782-X (Version None)
Quarter: 2011Q2

REPORT INFORMATION
  Report Type: 
  Country: None (occurrence: None)
  Receive Date: 20110419
  Receipt Date: 20100601
  Transmission Date: 20111010
  Serious: No
  Sender: FDA-Public Use
  Company Number: US-ABBOTT-10P-163-0649019-00

PATIENT
  Age: 9 Year
  Sex: Female

DRUGS (3)
  1. LUPRON DEPOT-PED [Suspect]
     Indication: PRECOCIOUS PUBERTY
     Route: 050
     Dates: start: 20091201, end: 20100101
  2. LUPRON DEPOT-PED [Suspect]
     Indication: PRECOCIOUS PUBERTY
     Dates: start: 20090101, end: 20091201
  3. LUPRON DEPOT-PED [Suspect]
     Dates: start: 20100501

REACTIONS (3)
  - RASH PAPULAR [None]
  - RASH ERYTHEMATOUS [None]
  - RASH PRURITIC [None]
